FAERS Safety Report 9414593 (Version 2)
Quarter: 2013Q3

REPORT INFORMATION
  Report Type: Spontaneous
  Country: DE (occurrence: DE)
  Receive Date: 20130723
  Receipt Date: 20130912
  Transmission Date: 20140515
  Serious: Yes (Hospitalization, Other)
  Sender: FDA-Public Use
  Company Number: DE-UCBSA-092508

PATIENT
  Age: 59 Year
  Sex: Male
  Weight: 81 kg

DRUGS (5)
  1. LEVETIRACETAM [Suspect]
     Indication: EPILEPSY
     Route: 048
     Dates: start: 20130413, end: 20130502
  2. ATACAND PLUS [Suspect]
     Indication: HYPERTENSION
     Dosage: DOSE: 32/25
     Route: 048
  3. NEBIVOLOL 5 [Concomitant]
     Indication: HYPERTENSION
     Dosage: DOSE: I DF ONCE EVERY DAY
     Route: 048
  4. LERCANIDIPIN 20 [Concomitant]
     Indication: HYPERTENSION
     Dosage: DOSE: 1 DF ONCE EVERY DAY
     Route: 048
  5. DEXAMETHASONE [Concomitant]
     Indication: OEDEMA

REACTIONS (1)
  - Hyponatraemia [Recovered/Resolved]
